FAERS Safety Report 23720310 (Version 1)
Quarter: 2024Q2

REPORT INFORMATION
  Report Type: Spontaneous
  Country: GB (occurrence: GB)
  Receive Date: 20240408
  Receipt Date: 20240408
  Transmission Date: 20240716
  Serious: Yes (Hospitalization)
  Sender: FDA-Public Use
  Company Number: None

PATIENT
  Age: 63 Year
  Sex: Female

DRUGS (1)
  1. ANASTROZOLE [Suspect]
     Active Substance: ANASTROZOLE
     Indication: Prophylaxis
     Dosage: 1 DOSAGE FORM, QD (ONE TABLET A DAY)
     Route: 065
     Dates: start: 20230408, end: 20240327

REACTIONS (1)
  - Uterine pain [Recovering/Resolving]

NARRATIVE: CASE EVENT DATE: 20240320
